FAERS Safety Report 24979289 (Version 2)
Quarter: 2025Q2

REPORT INFORMATION
  Report Type: Report from Study
  Country: GB (occurrence: GB)
  Receive Date: 20250218
  Receipt Date: 20250614
  Transmission Date: 20250716
  Serious: Yes (Other)
  Sender: CELLTRION
  Company Number: GB-CELLTRION INC.-2025GB004542

PATIENT

DRUGS (1)
  1. ADALIMUMAB-AATY [Suspect]
     Active Substance: ADALIMUMAB-AATY
     Indication: Psoriasis
     Dosage: 40 MG, INJECT ONE PRE-FILLED PEN EVERY TWO WEEKS
     Route: 058
     Dates: start: 20240904

REACTIONS (6)
  - Blood pressure increased [Unknown]
  - Urinary tract infection [Unknown]
  - Intentional dose omission [Unknown]
  - Product dose omission issue [Unknown]
  - Product prescribing issue [Unknown]
  - Product use issue [Unknown]
